FAERS Safety Report 11871667 (Version 1)
Quarter: 2015Q4

REPORT INFORMATION
  Report Type: Report from Study
  Country: NL (occurrence: NL)
  Receive Date: 20151228
  Receipt Date: 20151228
  Transmission Date: 20160305
  Serious: Yes (Hospitalization)
  Sender: FDA-Public Use
  Company Number: PHHO2015NL021195

PATIENT
  Age: 56 Year
  Sex: Male
  Weight: 84 kg

DRUGS (3)
  1. PROGRAF [Suspect]
     Active Substance: TACROLIMUS\TACROLIMUS ANHYDROUS
     Indication: RENAL TRANSPLANT
     Dosage: 3 MG, BID
     Route: 065
     Dates: start: 20150915
  2. MMF [Concomitant]
     Active Substance: MYCOPHENOLATE MOFETIL
     Indication: PRODUCT USED FOR UNKNOWN INDICATION
     Route: 065
  3. CERTICAN [Suspect]
     Active Substance: EVEROLIMUS
     Indication: RENAL TRANSPLANT
     Dosage: 1.5 MG, BID
     Route: 048
     Dates: start: 20150915, end: 20151208

REACTIONS (5)
  - Renal haematoma [Recovering/Resolving]
  - Blood creatinine increased [Recovering/Resolving]
  - Anaemia [Recovering/Resolving]
  - Cough [Recovering/Resolving]
  - C-reactive protein increased [Recovering/Resolving]

NARRATIVE: CASE EVENT DATE: 20151208
